FAERS Safety Report 7600616-5 (Version None)
Quarter: 2011Q3

REPORT INFORMATION
  Report Type: 
  Country: None (occurrence: None)
  Receive Date: 20110711
  Receipt Date: 20110706
  Transmission Date: 20111222
  Serious: Yes (Other)
  Sender: FDA-Public Use
  Company Number: US-PFIZER INC-2011152244

PATIENT
  Sex: Female
  Weight: 52.154 kg

DRUGS (7)
  1. PRISTIQ [Concomitant]
     Dosage: UNK
  2. AVASTIN [Concomitant]
     Dosage: UNK
  3. SUTENT [Suspect]
     Indication: RENAL CELL CARCINOMA
     Dosage: 12.5 MG, 3X/DAY
     Route: 048
     Dates: start: 20110603
  4. ADVIL LIQUI-GELS [Concomitant]
     Dosage: UNK
  5. AROMASIN [Suspect]
     Indication: BREAST CANCER
     Dosage: UNK
  6. TYLENOL-500 [Concomitant]
     Dosage: UNK, AS NEEDED
  7. IRON [Concomitant]
     Dosage: TABLETS
     Route: 048

REACTIONS (1)
  - RENAL FAILURE [None]
